FAERS Safety Report 5514987-7 (Version None)
Quarter: 2007Q4

REPORT INFORMATION
  Report Type: 
  Country: None (occurrence: None)
  Receive Date: 20071113
  Receipt Date: 20061103
  Transmission Date: 20080405
  Serious: No
  Sender: FDA-Public Use
  Company Number: A0626161A

PATIENT
  Age: 63 Year
  Sex: Female

DRUGS (2)
  1. COREG [Suspect]
     Dosage: 12.5MG TWICE PER DAY
     Route: 048
     Dates: start: 20060701
  2. LASIX [Concomitant]

REACTIONS (3)
  - DEPRESSION [None]
  - DIARRHOEA [None]
  - FATIGUE [None]
